FAERS Safety Report 7562545-5 (Version None)
Quarter: 2011Q2

REPORT INFORMATION
  Report Type: 
  Country: None (occurrence: None)
  Receive Date: 20110622
  Receipt Date: 20110615
  Transmission Date: 20111010
  Serious: Yes (Other)
  Sender: FDA-Public Use
  Company Number: GB-ROXANE LABORATORIES, INC.-2011-RO-00822RO

PATIENT
  Age: 76 Year
  Sex: Female

DRUGS (4)
  1. SERTRALINE HYDROCHLORIDE [Suspect]
     Indication: BIPOLAR DISORDER
  2. BECLOMETHASONE DIPROPIONATE [Suspect]
     Indication: ASTHMA
  3. RISPERIDONE [Suspect]
     Indication: BIPOLAR DISORDER
  4. ALBUTEROL [Suspect]
     Indication: ASTHMA

REACTIONS (2)
  - FLOPPY IRIS SYNDROME [None]
  - MIOSIS [None]
